FAERS Safety Report 5764145-6 (Version None)
Quarter: 2008Q2

REPORT INFORMATION
  Report Type: 
  Country: None (occurrence: None)
  Receive Date: 20080604
  Receipt Date: 20080522
  Transmission Date: 20081010
  Serious: Yes (Hospitalization)
  Sender: FDA-Public Use
  Company Number: 2008BI013277

PATIENT
  Age: 53 Year
  Sex: Female

DRUGS (1)
  1. AVONEX [Suspect]
     Indication: MULTIPLE SCLEROSIS
     Dosage: 30 UG;QW
     Dates: start: 19960101

REACTIONS (5)
  - ANKLE FRACTURE [None]
  - FALL [None]
  - FIBULA FRACTURE [None]
  - JOINT SPRAIN [None]
  - TIBIA FRACTURE [None]
